FAERS Safety Report 6279594-X (Version None)
Quarter: 2009Q3

REPORT INFORMATION
  Report Type: 
  Country: None (occurrence: None)
  Receive Date: 20090723
  Receipt Date: 20090714
  Transmission Date: 20100115
  Serious: Yes (Death, Hospitalization)
  Sender: FDA-Public Use
  Company Number: A0798039A

PATIENT
  Age: 79 Year
  Sex: Male

DRUGS (1)
  1. AVANDIA [Suspect]
     Dosage: 2MG PER DAY
     Route: 048

REACTIONS (2)
  - CEREBROVASCULAR ACCIDENT [None]
  - DEATH [None]
